FAERS Safety Report 9316685 (Version 1)
Quarter: 2013Q2

REPORT INFORMATION
  Report Type: Spontaneous
  Country: US (occurrence: None)
  Receive Date: 20130524
  Receipt Date: 20130524
  Transmission Date: 20140414
  Serious: Yes (Other)
  Sender: FDA-Public Use
  Company Number: AUR-APL-2013-04215

PATIENT
  Age: 7 Year
  Sex: Male

DRUGS (6)
  1. QUETIAPINE [Suspect]
     Indication: PSYCHOTHERAPY
  2. OLANZAPINE (OLANZAPINE) [Suspect]
     Indication: PSYCHOTHERAPY
  3. METHYLPHENIDATE HYDROCHLORIDE [Suspect]
     Indication: PSYCHOTHERAPY
  4. ZIPRASIDONE HCL [Suspect]
     Indication: PSYCHOTHERAPY
  5. ARIPIPRAZOLE [Suspect]
     Indication: PSYCHOTHERAPY
  6. CHLORPROMAZINE [Suspect]
     Indication: PSYCHOTHERAPY

REACTIONS (8)
  - Extrapyramidal disorder [None]
  - Hallucination [None]
  - Aggression [None]
  - Agitation [None]
  - Pain [None]
  - Arthralgia [None]
  - Psychomotor hyperactivity [None]
  - Drug ineffective [None]
